FAERS Safety Report 7709059-7 (Version None)
Quarter: 2011Q3

REPORT INFORMATION
  Report Type: 
  Country: None (occurrence: None)
  Receive Date: 20110819
  Receipt Date: 20110810
  Transmission Date: 20111222
  Serious: Yes (Hospitalization, Other)
  Sender: FDA-Public Use
  Company Number: 2010SP012617

PATIENT
  Age: 46 Year
  Sex: Female
  Weight: 60.782 kg

DRUGS (2)
  1. TOPIRAMATE [Concomitant]
  2. NUVARING [Suspect]
     Indication: CONTRACEPTION
     Dates: start: 20030301, end: 20050501

REACTIONS (14)
  - DEEP VEIN THROMBOSIS [None]
  - PULMONARY EMBOLISM [None]
  - PULMONARY INFARCTION [None]
  - ABDOMINAL PAIN [None]
  - LYMPHADENOPATHY [None]
  - OVARIAN CYST [None]
  - PALPITATIONS [None]
  - IRRITABLE BOWEL SYNDROME [None]
  - PERICARDIAL EFFUSION [None]
  - CARDIOMEGALY [None]
  - ADNEXA UTERI CYST [None]
  - ENDOMETRIAL HYPERPLASIA [None]
  - ENDOMETRIAL HYPERTROPHY [None]
  - THROMBOPHLEBITIS [None]
